FAERS Safety Report 12294122 (Version 1)
Quarter: 2016Q2

REPORT INFORMATION
  Report Type: Spontaneous
  Country: IN (occurrence: IN)
  Receive Date: 20160422
  Receipt Date: 20160422
  Transmission Date: 20160815
  Serious: Yes (Hospitalization, Other)
  Sender: FDA-Public Use
  Company Number: IN-ROCHE-1742048

PATIENT
  Age: 66 Year
  Sex: Female

DRUGS (14)
  1. TRASTUZUMAB [Suspect]
     Active Substance: TRASTUZUMAB
     Route: 065
  2. TRASTUZUMAB EMTANSINE [Suspect]
     Active Substance: ADO-TRASTUZUMAB EMTANSINE
     Indication: BREAST CANCER
     Route: 065
     Dates: start: 201502, end: 201505
  3. ZOLEDRONIC ACID [Suspect]
     Active Substance: ZOLEDRONIC ACID
     Indication: BREAST CANCER
     Route: 065
  4. PACLITAXEL. [Suspect]
     Active Substance: PACLITAXEL
     Indication: BREAST CANCER
     Dosage: LAST DOSE IN MAR/2012
     Route: 065
  5. GEMCITABINE [Suspect]
     Active Substance: GEMCITABINE\GEMCITABINE HYDROCHLORIDE
     Indication: BREAST CANCER
     Route: 065
  6. LAPATINIB [Suspect]
     Active Substance: LAPATINIB
     Route: 065
     Dates: start: 201411, end: 201502
  7. LAPATINIB [Suspect]
     Active Substance: LAPATINIB
     Indication: BREAST CANCER
     Route: 065
  8. CAPECITABINE. [Suspect]
     Active Substance: CAPECITABINE
     Indication: BREAST CANCER
     Route: 065
     Dates: start: 201411, end: 201502
  9. PACLITAXEL. [Suspect]
     Active Substance: PACLITAXEL
     Route: 065
  10. TRASTUZUMAB [Suspect]
     Active Substance: TRASTUZUMAB
     Dosage: AS MAINTENANCE DOSE
     Route: 065
     Dates: start: 201507
  11. LAPATINIB [Suspect]
     Active Substance: LAPATINIB
     Dosage: AS MAINTENANCE DOSE
     Route: 065
     Dates: start: 201507
  12. CARBOPLATIN. [Suspect]
     Active Substance: CARBOPLATIN
     Indication: BREAST CANCER
     Route: 065
  13. TRASTUZUMAB [Suspect]
     Active Substance: TRASTUZUMAB
     Indication: BREAST CANCER
     Dosage: LAST DOSE IN MAR/2012?13TH CYCLE ON 05/MAR/2014
     Route: 065
  14. DENOSUMAB [Suspect]
     Active Substance: DENOSUMAB
     Indication: BREAST CANCER
     Route: 065
     Dates: start: 201502

REACTIONS (7)
  - Skin toxicity [Unknown]
  - Dyspnoea [Unknown]
  - Empyema [Recovered/Resolved]
  - Oxygen saturation decreased [Unknown]
  - Pleural effusion [Recovered/Resolved]
  - Metastases to central nervous system [Unknown]
  - Neuropathy peripheral [Unknown]

NARRATIVE: CASE EVENT DATE: 20151109
